FAERS Safety Report 22602509 (Version 1)
Quarter: 2023Q2

REPORT INFORMATION
  Report Type: Spontaneous
  Country: HR (occurrence: HR)
  Receive Date: 20230614
  Receipt Date: 20230614
  Transmission Date: 20230722
  Serious: Yes (Other)
  Sender: FDA-Public Use
  Company Number: HR-BRISTOL-MYERS SQUIBB COMPANY-2023-080958

PATIENT
  Age: 65 Year
  Sex: Male

DRUGS (1)
  1. OPDIVO [Suspect]
     Active Substance: NIVOLUMAB
     Indication: Non-small cell lung cancer
     Route: 042
     Dates: start: 20210426

REACTIONS (6)
  - Hypothyroidism [Unknown]
  - Diverticulum [Unknown]
  - Oesophageal carcinoma [Unknown]
  - Lung consolidation [Unknown]
  - Gastrointestinal wall thickening [Unknown]
  - Colon cancer [Unknown]

NARRATIVE: CASE EVENT DATE: 20220601
